FAERS Safety Report 7686595-3 (Version None)
Quarter: 2011Q3

REPORT INFORMATION
  Report Type: 
  Country: None (occurrence: None)
  Receive Date: 20110816
  Receipt Date: 20110808
  Transmission Date: 20111222
  Serious: Yes (Hospitalization, Other)
  Sender: FDA-Public Use
  Company Number: US-MERCK-1102USA01521

PATIENT
  Age: 81 Year
  Sex: Female

DRUGS (1)
  1. FOSAMAX [Suspect]
     Indication: OSTEOPOROSIS
     Route: 048

REACTIONS (32)
  - TIBIA FRACTURE [None]
  - FIBULA FRACTURE [None]
  - DYSARTHRIA [None]
  - LOW TURNOVER OSTEOPATHY [None]
  - HYPOTHYROIDISM [None]
  - BREAST CANCER METASTATIC [None]
  - CARDIAC FAILURE CONGESTIVE [None]
  - NERVOUSNESS [None]
  - DELIRIUM [None]
  - PNEUMONIA [None]
  - POLIOMYELITIS [None]
  - SPINAL OSTEOARTHRITIS [None]
  - CALCIUM DEFICIENCY [None]
  - MITRAL VALVE INCOMPETENCE [None]
  - TRICUSPID VALVE INCOMPETENCE [None]
  - BLOOD POTASSIUM INCREASED [None]
  - PATELLA FRACTURE [None]
  - HYPOACUSIS [None]
  - AORTIC VALVE INCOMPETENCE [None]
  - ROTATOR CUFF SYNDROME [None]
  - BLOOD CHOLESTEROL INCREASED [None]
  - CONJUNCTIVAL HYPERAEMIA [None]
  - ATRIAL FIBRILLATION [None]
  - FALL [None]
  - DYSLIPIDAEMIA [None]
  - LACERATION [None]
  - PANCYTOPENIA [None]
  - HOSPITALISATION [None]
  - FEMUR FRACTURE [None]
  - ANAEMIA [None]
  - MUSCULAR WEAKNESS [None]
  - VITAMIN D DEFICIENCY [None]
